FAERS Safety Report 5718095-1 (Version None)
Quarter: 2008Q2

REPORT INFORMATION
  Report Type: 
  Country: None (occurrence: None)
  Receive Date: 20080425
  Receipt Date: 20080415
  Transmission Date: 20081010
  Serious: Yes (Other)
  Sender: FDA-Public Use
  Company Number: PL-MERCK-0804USA03656

PATIENT
  Age: 50 Year
  Sex: Male

DRUGS (2)
  1. DECADRON [Suspect]
     Route: 065
  2. PREDNISONE [Suspect]
     Route: 065

REACTIONS (1)
  - DRUG INEFFECTIVE [None]
